FAERS Safety Report 7934483-7 (Version None)
Quarter: 2011Q4

REPORT INFORMATION
  Report Type: 
  Country: None (occurrence: None)
  Receive Date: 20111122
  Receipt Date: 20111116
  Transmission Date: 20120403
  Serious: Yes (Other)
  Sender: FDA-Public Use
  Company Number: JP-VIIV HEALTHCARE LIMITED-B0763625A

PATIENT
  Sex: Male

DRUGS (10)
  1. EPZICOM [Suspect]
     Indication: ACQUIRED IMMUNODEFICIENCY SYNDROME
     Dosage: 1IUAX PER DAY
     Route: 048
     Dates: start: 20101005
  2. KALETRA [Suspect]
     Indication: ACQUIRED IMMUNODEFICIENCY SYNDROME
     Dosage: 4IUAX PER DAY
     Route: 048
     Dates: start: 20090714, end: 20101004
  3. NORVIR [Suspect]
     Indication: ACQUIRED IMMUNODEFICIENCY SYNDROME
     Dosage: 100MG PER DAY
     Route: 048
     Dates: start: 20110217, end: 20110330
  4. TRUVADA [Suspect]
     Indication: ACQUIRED IMMUNODEFICIENCY SYNDROME
     Dosage: 1IUAX PER DAY
     Route: 048
     Dates: start: 20090714, end: 20101004
  5. PREZISTA [Suspect]
     Indication: ACQUIRED IMMUNODEFICIENCY SYNDROME
     Dosage: 800MG PER DAY
     Route: 048
     Dates: start: 20110228, end: 20110330
  6. ISENTRESS [Suspect]
     Indication: ACQUIRED IMMUNODEFICIENCY SYNDROME
     Dosage: 800MG PER DAY
     Route: 048
     Dates: start: 20101005, end: 20101022
  7. KALETRA [Suspect]
     Dosage: 4IUAX PER DAY
     Route: 048
     Dates: start: 20110217, end: 20110227
  8. SULFAMETHOXAZOLE AND TRIMETHOPRIM [Concomitant]
     Indication: ACQUIRED IMMUNODEFICIENCY SYNDROME
     Dosage: 1IUAX PER DAY
     Route: 048
     Dates: start: 20100401, end: 20101005
  9. ISENTRESS [Suspect]
     Dosage: 800MG PER DAY
     Route: 048
     Dates: start: 20110331
  10. LEXIVA [Suspect]
     Indication: ACQUIRED IMMUNODEFICIENCY SYNDROME
     Dosage: 2800MG PER DAY
     Route: 048
     Dates: start: 20101023, end: 20110216

REACTIONS (3)
  - DISSEMINATED TUBERCULOSIS [None]
  - LUNG INFECTION [None]
  - IMMUNE RECONSTITUTION SYNDROME [None]
